FAERS Safety Report 16152312 (Version 1)
Quarter: 2019Q2

REPORT INFORMATION
  Report Type: Spontaneous
  Country: US (occurrence: US)
  Receive Date: 20190403
  Receipt Date: 20190403
  Transmission Date: 20190711
  Serious: Yes (Other)
  Sender: FDA-Public Use
  Company Number: US-GLAXOSMITHKLINE-US2019GSK058665

PATIENT
  Sex: Male

DRUGS (3)
  1. PREVACID [Suspect]
     Active Substance: LANSOPRAZOLE
     Indication: DYSPEPSIA
     Dosage: UNK
     Route: 065
  2. PREVACID [Suspect]
     Active Substance: LANSOPRAZOLE
     Indication: ULCER
  3. PREVACID [Suspect]
     Active Substance: LANSOPRAZOLE
     Indication: PRODUCT USED FOR UNKNOWN INDICATION
     Dosage: 30 MG, QD
     Route: 065

REACTIONS (14)
  - Nephrolithiasis [Unknown]
  - Nephrotic syndrome [Unknown]
  - Renal disorder [Unknown]
  - Haematuria [Unknown]
  - Blood urea increased [Unknown]
  - Biopsy kidney [Unknown]
  - Renal failure [Unknown]
  - Nephrocalcinosis [Unknown]
  - Chronic kidney disease [Unknown]
  - Kidney infection [Unknown]
  - Blood creatinine increased [Unknown]
  - Acute kidney injury [Unknown]
  - Proteinuria [Unknown]
  - Glycosuria [Unknown]
